FAERS Safety Report 7598078-X (Version None)
Quarter: 2011Q3

REPORT INFORMATION
  Report Type: 
  Country: None (occurrence: None)
  Receive Date: 20110708
  Receipt Date: 20110628
  Transmission Date: 20111222
  Serious: Yes (Hospitalization)
  Sender: FDA-Public Use
  Company Number: FR-VERTEX PHARMACEUTICALS INC.-AE-2011-000241

PATIENT
  Sex: Female
  Weight: 72 kg

DRUGS (4)
  1. PEGINTERFERON ALFA-2A [Concomitant]
     Indication: HEPATITIS C
     Route: 058
  2. NEUPOGEN [Concomitant]
  3. VX-950 [Suspect]
     Indication: HEPATITIS C
     Route: 048
     Dates: start: 20110418
  4. RIBAVIRIN [Concomitant]
     Indication: HEPATITIS C
     Route: 048

REACTIONS (5)
  - WRONG DRUG ADMINISTERED [None]
  - HAEMOLYTIC ANAEMIA [None]
  - PLATELET COUNT DECREASED [None]
  - INAPPROPRIATE SCHEDULE OF DRUG ADMINISTRATION [None]
  - ALANINE AMINOTRANSFERASE INCREASED [None]
